FAERS Safety Report 10199119 (Version 2)
Quarter: 2014Q3

REPORT INFORMATION
  Report Type: Spontaneous
  Country: DE (occurrence: DE)
  Receive Date: 20140527
  Receipt Date: 20140722
  Transmission Date: 20150326
  Serious: Yes (Life-Threatening, Hospitalization)
  Sender: FDA-Public Use
  Company Number: DE-BRISTOL-MYERS SQUIBB COMPANY-20759833

PATIENT
  Age: 82 Year
  Sex: Female

DRUGS (7)
  1. AMLODIPINE [Concomitant]
     Active Substance: AMLODIPINE BESYLATE
  2. ELIQUIS [Suspect]
     Active Substance: APIXABAN
     Indication: CEREBROVASCULAR ACCIDENT PROPHYLAXIS
  3. SIMVASTATIN. [Concomitant]
     Active Substance: SIMVASTATIN
  4. COAPROVEL [Concomitant]
     Active Substance: HYDROCHLOROTHIAZIDE\IRBESARTAN
  5. LANTUS [Concomitant]
     Active Substance: INSULIN GLARGINE
  6. FUROSEMIDE. [Concomitant]
     Active Substance: FUROSEMIDE
  7. MARCUMAR [Suspect]
     Active Substance: PHENPROCOUMON
     Dates: end: 201401

REACTIONS (11)
  - Haemoglobin decreased [Unknown]
  - Prothrombin time prolonged [Recovering/Resolving]
  - Contusion [Unknown]
  - Cardiovascular disorder [Unknown]
  - Gastrointestinal haemorrhage [Unknown]
  - Overdose [Unknown]
  - Fall [Unknown]
  - Wound [Unknown]
  - Haemorrhage [Unknown]
  - Epistaxis [Unknown]
  - Cephalhaematoma [Unknown]
